FAERS Safety Report 10858035 (Version 1)
Quarter: 2015Q1

REPORT INFORMATION
  Report Type: Spontaneous
  Country: US (occurrence: US)
  Receive Date: 20150223
  Receipt Date: 20150223
  Transmission Date: 20150721
  Serious: Yes (Hospitalization)
  Sender: FDA-Public Use
  Company Number: US-GLAXOSMITHKLINE-US2015GSK023866

PATIENT
  Sex: Female

DRUGS (2)
  1. BENADRYL [Concomitant]
     Active Substance: DIPHENHYDRAMINE HYDROCHLORIDE
  2. BENLYSTA [Suspect]
     Active Substance: BELIMUMAB
     Indication: SYSTEMIC LUPUS ERYTHEMATOSUS
     Dosage: 545 MG, EVERY 2 WEEKS
     Route: 042
     Dates: start: 20141117, end: 20141117

REACTIONS (7)
  - Hypersensitivity [Unknown]
  - Chest pain [Unknown]
  - Rash [Unknown]
  - Nausea [Unknown]
  - Vomiting [Unknown]
  - Abdominal discomfort [Unknown]
  - Joint swelling [Unknown]

NARRATIVE: CASE EVENT DATE: 20141117
